FAERS Safety Report 23819189 (Version 1)
Quarter: 2024Q2

REPORT INFORMATION
  Report Type: Other
  Country: CN (occurrence: CN)
  Receive Date: 20240506
  Receipt Date: 20240506
  Transmission Date: 20240716
  Serious: Yes (Hospitalization, Disabling, Other)
  Sender: FDA-Public Use
  Company Number: CN-QILU PHARMACEUTICAL (HAINAN) CO.  LTD.-QLH-000071-2024

PATIENT
  Age: 72 Year
  Sex: Male
  Weight: 56 kg

DRUGS (6)
  1. OXALIPLATIN [Suspect]
     Active Substance: OXALIPLATIN
     Indication: Hepatocellular carcinoma
     Dosage: 150 MG PER EVERY 4 WEEKS
     Route: 013
     Dates: start: 20231201, end: 20231201
  2. OXALIPLATIN [Suspect]
     Active Substance: OXALIPLATIN
     Dosage: 150 MG PER EVERY 4 WEEKS
     Route: 013
     Dates: start: 20231226, end: 20231226
  3. OXALIPLATIN [Suspect]
     Active Substance: OXALIPLATIN
     Dosage: 150 MG PER EVERY 4 WEEKS
     Route: 013
     Dates: start: 20240125, end: 20240125
  4. RALTITREXED [Suspect]
     Active Substance: RALTITREXED
     Indication: Hepatocellular carcinoma
     Dosage: 4 MG PER EVERY 4 WEEKS
     Route: 013
     Dates: start: 20231201, end: 20231201
  5. RALTITREXED [Suspect]
     Active Substance: RALTITREXED
     Dosage: 4 MG PER EVERY 4 WEEKS
     Route: 013
     Dates: start: 20231226, end: 20231226
  6. RALTITREXED [Suspect]
     Active Substance: RALTITREXED
     Dosage: 4 MG PER EVERY 4 WEEKS
     Route: 013
     Dates: start: 20240125, end: 20240125

REACTIONS (3)
  - Gastric ulcer [Not Recovered/Not Resolved]
  - Product use issue [Recovered/Resolved]
  - Product use in unapproved indication [Recovered/Resolved]

NARRATIVE: CASE EVENT DATE: 20231201
